FAERS Safety Report 6443330-4 (Version None)
Quarter: 2009Q4

REPORT INFORMATION
  Report Type: 
  Country: None (occurrence: None)
  Receive Date: 20091112
  Receipt Date: 20091027
  Transmission Date: 20100525
  Serious: No
  Sender: FDA-Public Use
  Company Number: 2009-0018

PATIENT
  Sex: Male

DRUGS (6)
  1. METOCLOPRAMIDE [Suspect]
     Indication: NAUSEA
     Dosage: 5 ML Q6HRS
  2. FAMOTIDOL [Concomitant]
  3. ATENOLOL [Concomitant]
  4. ASPIRIN [Concomitant]
  5. OSCAL [Concomitant]
  6. VITAMINS [Concomitant]

REACTIONS (2)
  - GLOSSODYNIA [None]
  - THROAT IRRITATION [None]
